FAERS Safety Report 5022694-2 (Version None)
Quarter: 2006Q2

REPORT INFORMATION
  Report Type: 
  Country: None (occurrence: None)
  Receive Date: 20060605
  Receipt Date: 20060523
  Transmission Date: 20061013
  Serious: Yes (Death, Hospitalization)
  Sender: FDA-Public Use
  Company Number: JP200605002814

PATIENT
  Age: 58 Year
  Sex: Male

DRUGS (4)
  1. GEMZAR [Suspect]
     Indication: PANCREATIC CARCINOMA
     Dosage: 1200 MG, OTHER, INTRAVENOUS
     Route: 042
     Dates: start: 20060427, end: 20060427
  2. KYTRIL - FOR INFUSION (GRANISETRON HYDROCHLORIDE) [Concomitant]
  3. DECADRON #1 (DEXAMETHASONE SODIUM PHOPHATE) [Concomitant]
  4. BETAMETHASONE [Concomitant]

REACTIONS (2)
  - ACTIVITIES OF DAILY LIVING IMPAIRED [None]
  - NEUROPATHY PERIPHERAL [None]
